FAERS Safety Report 5661709-5 (Version None)
Quarter: 2008Q1

REPORT INFORMATION
  Report Type: 
  Country: None (occurrence: None)
  Receive Date: 20080312
  Receipt Date: 20080307
  Transmission Date: 20080703
  Serious: Yes (Other)
  Sender: FDA-Public Use
  Company Number: B0472712A

PATIENT
  Age: 27 Year
  Sex: Female

DRUGS (3)
  1. VALTREX [Suspect]
     Indication: VARICELLA
     Dosage: 1000MG TWICE PER DAY
     Route: 048
     Dates: start: 20070507, end: 20070507
  2. ZOVIRAX [Suspect]
     Indication: VARICELLA
     Route: 042
     Dates: start: 20070508
  3. PERIACTIN [Concomitant]
     Indication: PRURITUS
     Route: 048

REACTIONS (2)
  - ABORTION SPONTANEOUS [None]
  - DRUG EXPOSURE DURING PREGNANCY [None]
